FAERS Safety Report 10508782 (Version 1)
Quarter: 2014Q4

REPORT INFORMATION
  Report Type: Spontaneous
  Country: US (occurrence: None)
  Receive Date: 20141008
  Receipt Date: 20141008
  Transmission Date: 20150528
  Serious: Yes (Hospitalization)
  Sender: FDA-Public Use
  Company Number: None

PATIENT
  Age: 59 Year
  Sex: Female
  Weight: 70.5 kg

DRUGS (2)
  1. DOXYCYCLINE. [Suspect]
     Active Substance: DOXYCYCLINE
     Indication: ROCKY MOUNTAIN SPOTTED FEVER
     Dosage: MG  BID  PO
     Route: 048
     Dates: start: 20140318, end: 20140324
  2. IBUPROFEN. [Suspect]
     Active Substance: IBUPROFEN
     Indication: PAIN
     Dosage: MG  PO?~03/20/2014 THRU 03/24/2014
     Route: 048
     Dates: start: 20140320, end: 20140324

REACTIONS (7)
  - Pyrexia [None]
  - Myalgia [None]
  - Rash [None]
  - Erythema multiforme [None]
  - Pruritus [None]
  - Headache [None]
  - Urticaria [None]

NARRATIVE: CASE EVENT DATE: 20140321
